FAERS Safety Report 14851976 (Version 7)
Quarter: 2019Q1

REPORT INFORMATION
  Report Type: Spontaneous
  Country: GB (occurrence: GB)
  Receive Date: 20180507
  Receipt Date: 20190330
  Transmission Date: 20190417
  Serious: Yes (Hospitalization, Other)
  Sender: FDA-Public Use
  Company Number: GB-ACCORD-066540

PATIENT
  Age: 44 Year
  Sex: Male

DRUGS (8)
  1. SIMVASTATIN. [Suspect]
     Active Substance: SIMVASTATIN
     Indication: HYPERCHOLESTEROLAEMIA
     Dosage: 40 MG, QD (PM)
     Route: 048
  2. METFORMIN [Concomitant]
     Active Substance: METFORMIN HYDROCHLORIDE
     Route: 065
  3. SIMVASTATIN. [Concomitant]
     Active Substance: SIMVASTATIN
     Route: 065
  4. TRAJENTA [Suspect]
     Active Substance: LINAGLIPTIN
     Indication: TYPE 2 DIABETES MELLITUS
     Dosage: 5 MG, QD (AM)
     Route: 048
  5. ATENOLOL/ATENOLOL HYDROCHLORIDE [Suspect]
     Active Substance: ATENOLOL HYDROCHLORIDE
     Indication: ARRHYTHMIA
     Dosage: 25 MG, QD (AM)
     Route: 048
  6. METFORMIN [Suspect]
     Active Substance: METFORMIN HYDROCHLORIDE
     Indication: DIABETES MELLITUS
     Dosage: 1 G, BID 4 GRAM DAILY
     Route: 048
  7. CLOZARIL [Suspect]
     Active Substance: CLOZAPINE
     Indication: SCHIZOPHRENIA
     Dosage: 300 MG, PM,ALSO TAKEN 500 MG,START PERIOD 23 (YEARS), 200 MG, ALSO RECEIVED FOR 46 YEARS FROM 2017.
     Route: 048
     Dates: start: 19940804, end: 20171020
  8. CLOZAPINE. [Suspect]
     Active Substance: CLOZAPINE
     Indication: SCHIZOPHRENIA
     Dosage: (200 MG, AM, 300 MG PM), START PERIOD 23 (YEARS)
     Route: 048
     Dates: start: 19940804, end: 20171020

REACTIONS (4)
  - Product dose omission [Unknown]
  - Fournier^s gangrene [Unknown]
  - Sepsis [Recovered/Resolved with Sequelae]
  - Gangrene [Unknown]

NARRATIVE: CASE EVENT DATE: 2017
